FAERS Safety Report 4471994-3 (Version None)
Quarter: 2004Q4

REPORT INFORMATION
  Report Type: 
  Country: None (occurrence: None)
  Receive Date: 20041007
  Receipt Date: 20040924
  Transmission Date: 20050328
  Serious: Yes (Death, Other)
  Sender: FDA-Public Use
  Company Number: 2004049128

PATIENT
  Age: 81 Year
  Sex: Male

DRUGS (8)
  1. NORVASC [Suspect]
     Indication: HYPERTENSION
     Dosage: 10 MG (5 MG, 2 IN 1 D), ORAL
     Route: 048
     Dates: start: 20010406, end: 20011122
  2. DONEPEZIL HCL [Suspect]
     Indication: DEMENTIA
     Dosage: 5 MG (1 IN 1 D), ORAL
     Route: 048
     Dates: start: 20010627, end: 20011122
  3. DONEPEZIL HCL [Suspect]
     Indication: DEMENTIA ALZHEIMER'S TYPE
     Dosage: 5 MG (1 IN 1 D), ORAL
     Route: 048
     Dates: start: 20010627, end: 20011122
  4. DICLOFENAC SODIUM [Suspect]
     Indication: NASOPHARYNGITIS
     Dosage: 50 MG (25 MG, 2 IN 1 D), ORAL
     Route: 048
     Dates: start: 20010406, end: 20011122
  5. CARBON COMPOUND (BELLADONNA EXTRACT, CHARCOAL, ACTIVATED, MAGNESIUM HY [Suspect]
     Indication: RENAL FAILURE CHRONIC
     Dosage: 1.8 GRAM (0.6 GRAM, 3 IN 1 D), ORAL  : 6 GRAM (2 GRAM, 3 IN 1 D), ORAL
     Route: 048
     Dates: start: 20010406, end: 20011012
  6. CARBON COMPOUND (BELLADONNA EXTRACT, CHARCOAL, ACTIVATED, MAGNESIUM HY [Suspect]
     Indication: RENAL FAILURE CHRONIC
     Dosage: 1.8 GRAM (0.6 GRAM, 3 IN 1 D), ORAL  : 6 GRAM (2 GRAM, 3 IN 1 D), ORAL
     Route: 048
     Dates: start: 20011013, end: 20011122
  7. TAMSULOSIN HYDROCHLORIDE (TAMSULOSIN HYDROCHLORIDE) [Suspect]
     Indication: BENIGN PROSTATIC HYPERPLASIA
     Dosage: 0.2 MG (0.2 MG , 1 IN 1 D), ORAL
     Route: 048
     Dates: start: 20110406, end: 20011122
  8. ALOSENN (ACHILLEA, RUBIA ROOT TINCTURE, SENNA FRUIT, SENNA LEAF, TARAX [Suspect]
     Indication: LAXATIVE SUPPORTIVE CARE
     Dosage: 1.5 GRAM (1.5 GRAM, 1 IN 1 D) , ORAL
     Route: 048
     Dates: start: 20010406, end: 20011122

REACTIONS (6)
  - CONDITION AGGRAVATED [None]
  - DEMENTIA [None]
  - GASTROINTESTINAL HAEMORRHAGE [None]
  - NASOPHARYNGITIS [None]
  - PYREXIA [None]
  - RENAL FAILURE [None]
